FAERS Safety Report 7258955-6 (Version None)
Quarter: 2011Q1

REPORT INFORMATION
  Report Type: 
  Country: None (occurrence: None)
  Receive Date: 20110129
  Receipt Date: 20100623
  Transmission Date: 20110831
  Serious: No
  Sender: FDA-Public Use
  Company Number: US-ABBOTT-10P-163-0652989-00

PATIENT
  Sex: Female

DRUGS (3)
  1. HUMIRA [Suspect]
     Indication: RHEUMATOID ARTHRITIS
     Route: 058
     Dates: start: 20100611
  2. PREDNISONE [Concomitant]
     Indication: RHEUMATOID ARTHRITIS
     Dosage: DAILY
     Dates: start: 20091201
  3. ADVAIR [Concomitant]
     Indication: ASTHMA
     Dosage: 500/100, TWICE DAILY

REACTIONS (3)
  - RASH PAPULAR [None]
  - RASH PRURITIC [None]
  - RASH MACULAR [None]
